FAERS Safety Report 8502792-9 (Version None)
Quarter: 2012Q2

REPORT INFORMATION
  Report Type: 
  Country: None (occurrence: None)
  Receive Date: 20120629
  Receipt Date: 20120619
  Transmission Date: 20120825
  Serious: Yes (Death)
  Sender: FDA-Public Use
  Company Number: DSA_58062_2012

PATIENT
  Sex: Female

DRUGS (3)
  1. FLUOROURACIL [Suspect]
     Indication: BREAST CANCER
     Dosage: (600 MG/M2 ONDAYS 1 AND 8 INTRAVENOUS (NOT OTHERWISE SPECIFIED))
     Route: 042
  2. CYCLOPHOSPHAMIDE [Suspect]
     Indication: BREAST CANCER
     Dosage: (100 MG/M2 ON DAYS 1-14 ORAL)
     Route: 048
  3. METHOTREXATE [Suspect]
     Indication: BREAST CANCER
     Dosage: (40 MG/M2 ON DAYS 1 AND 8 INTRAVENOUS (NOT OTHERWISE SPECIFIED))
     Route: 042

REACTIONS (1)
  - SEPSIS [None]
